FAERS Safety Report 7927493-7 (Version None)
Quarter: 2011Q4

REPORT INFORMATION
  Report Type: 
  Country: None (occurrence: None)
  Receive Date: 20111116
  Receipt Date: 20110906
  Transmission Date: 20120403
  Serious: Yes (Other)
  Sender: FDA-Public Use
  Company Number: AUR-APL-2011-05782

PATIENT
  Age: 79 Year
  Sex: Female

DRUGS (24)
  1. MIRTAZAPINE [Suspect]
     Indication: PRODUCT USED FOR UNKNOWN INDICATION
  2. MICARDIS [Suspect]
     Indication: PRODUCT USED FOR UNKNOWN INDICATION
  3. CARDURA [Suspect]
     Indication: PRODUCT USED FOR UNKNOWN INDICATION
  4. MACROBID [Suspect]
     Indication: PRODUCT USED FOR UNKNOWN INDICATION
  5. PROZAC [Suspect]
     Indication: PRODUCT USED FOR UNKNOWN INDICATION
  6. CIPRO [Suspect]
     Indication: PRODUCT USED FOR UNKNOWN INDICATION
  7. NORVASC [Suspect]
     Indication: PRODUCT USED FOR UNKNOWN INDICATION
  8. VASOTEC [Suspect]
     Indication: PRODUCT USED FOR UNKNOWN INDICATION
  9. DIOVAN [Suspect]
     Indication: PRODUCT USED FOR UNKNOWN INDICATION
  10. DILTIAZEM [Suspect]
     Indication: PRODUCT USED FOR UNKNOWN INDICATION
  11. TIAZAC [Suspect]
     Indication: PRODUCT USED FOR UNKNOWN INDICATION
  12. ZOLOFT [Suspect]
     Indication: PRODUCT USED FOR UNKNOWN INDICATION
  13. CYMBALTA [Suspect]
     Indication: PRODUCT USED FOR UNKNOWN INDICATION
  14. EFFEXOR XR [Concomitant]
  15. CELEBREX [Suspect]
     Indication: PRODUCT USED FOR UNKNOWN INDICATION
  16. FENTANYL [Suspect]
     Indication: PRODUCT USED FOR UNKNOWN INDICATION
  17. NAPROXEN [Suspect]
     Indication: PRODUCT USED FOR UNKNOWN INDICATION
  18. WELLBUTRIN XL [Suspect]
     Indication: PRODUCT USED FOR UNKNOWN INDICATION
  19. LEVAQUIN [Suspect]
     Indication: PRODUCT USED FOR UNKNOWN INDICATION
  20. TEKTURNA [Suspect]
     Indication: PRODUCT USED FOR UNKNOWN INDICATION
  21. TOPROL-XL [Suspect]
     Indication: PRODUCT USED FOR UNKNOWN INDICATION
  22. CARTIA XT [Suspect]
     Indication: PRODUCT USED FOR UNKNOWN INDICATION
  23. PROTONIX [Concomitant]
  24. PAXIL [Suspect]
     Indication: PRODUCT USED FOR UNKNOWN INDICATION

REACTIONS (20)
  - DIARRHOEA [None]
  - PHARYNGEAL OEDEMA [None]
  - NAUSEA [None]
  - NIGHTMARE [None]
  - HYPOTENSION [None]
  - NERVOUSNESS [None]
  - TREMOR [None]
  - MUSCLE SPASMS [None]
  - ARTHRALGIA [None]
  - ANXIETY [None]
  - FEELING OF BODY TEMPERATURE CHANGE [None]
  - HEART RATE DECREASED [None]
  - BLOOD PRESSURE INCREASED [None]
  - ORTHOSTATIC HYPOTENSION [None]
  - PALPITATIONS [None]
  - DIZZINESS [None]
  - AGITATION [None]
  - RESTLESS LEGS SYNDROME [None]
  - DYSPEPSIA [None]
  - DISORIENTATION [None]
